FAERS Safety Report 9149324 (Version 1)
Quarter: 2013Q1

REPORT INFORMATION
  Report Type: Report from Study
  Country: US (occurrence: US)
  Receive Date: 20130308
  Receipt Date: 20130308
  Transmission Date: 20140127
  Serious: No
  Sender: FDA-Public Use
  Company Number: US-VERTEX PHARMACEUTICALS INC.-2013-003085

PATIENT
  Sex: Female
  Weight: 100 kg

DRUGS (2)
  1. VX-950 (TELAPREVIR) [Suspect]
     Indication: HEPATITIS C
     Dosage: 750 MG, TID
     Route: 048
  2. PEGASYS [Suspect]
     Indication: HEPATITIS C

REACTIONS (8)
  - Pneumonia [Unknown]
  - Renal pain [Unknown]
  - Pulmonary congestion [Unknown]
  - Insomnia [Unknown]
  - Blood count abnormal [Unknown]
  - Injection site bruising [Unknown]
  - Local swelling [Unknown]
  - Swelling face [Unknown]
